FAERS Safety Report 22077089 (Version 2)
Quarter: 2023Q1

REPORT INFORMATION
  Report Type: Spontaneous
  Country: US (occurrence: US)
  Receive Date: 20230309
  Receipt Date: 20230315
  Transmission Date: 20230418
  Serious: No
  Sender: FDA-Public Use
  Company Number: US-LEO Pharma-349868

PATIENT
  Age: 61 Year
  Sex: Female

DRUGS (2)
  1. ADBRY [Suspect]
     Active Substance: TRALOKINUMAB-LDRM
     Indication: Dermatitis atopic
     Dosage: DOSAGE: 300 MG UNDER THE SKIN EVERY 2 WEEKS
     Dates: start: 20230127
  2. ADBRY [Suspect]
     Active Substance: TRALOKINUMAB-LDRM
     Indication: Dermatitis atopic
     Dosage: DOSAGE: 300 MG UNDER THE SKIN EVERY 2 WEEKS
     Dates: start: 20230127

REACTIONS (6)
  - Rash [Unknown]
  - Drug ineffective [Unknown]
  - Adverse drug reaction [Unknown]
  - Dry skin [Unknown]
  - Vision blurred [Unknown]
  - Dyspnoea [Unknown]

NARRATIVE: CASE EVENT DATE: 20230127
